FAERS Safety Report 8874378 (Version 1)
Quarter: 2012Q4

REPORT INFORMATION
  Report Type: 
  Country: US (occurrence: US)
  Receive Date: 20121031
  Receipt Date: 20121031
  Transmission Date: 20130627
  Serious: No
  Sender: FDA-Public Use
  Company Number: US-BIOGENIDEC-2012BI047645

PATIENT
  Sex: Female

DRUGS (3)
  1. TYSABRI [Suspect]
     Indication: MULTIPLE SCLEROSIS
     Route: 042
  2. AVONEX [Concomitant]
     Indication: MULTIPLE SCLEROSIS
     Route: 030
  3. LEXAPRO [Concomitant]
     Indication: FATIGUE

REACTIONS (3)
  - Burning sensation [Not Recovered/Not Resolved]
  - Mood swings [Recovered/Resolved]
  - Hypermetropia [Not Recovered/Not Resolved]
